FAERS Safety Report 9482108 (Version 3)
Quarter: 2013Q3

REPORT INFORMATION
  Report Type: Report from Study
  Country: CN (occurrence: CN)
  Receive Date: 20130828
  Receipt Date: 20130927
  Transmission Date: 20140515
  Serious: Yes (Death, Hospitalization)
  Sender: FDA-Public Use
  Company Number: PHHO2013CN011041

PATIENT
  Age: 52 Year
  Sex: Male
  Weight: 63 kg

DRUGS (11)
  1. AMN107 [Suspect]
     Indication: CHRONIC MYELOID LEUKAEMIA
     Dosage: 400 MG, BID
     Dates: start: 20121227, end: 20130527
  2. AMN107 [Suspect]
     Dosage: 400 MG, BID
     Dates: start: 20130808, end: 20130819
  3. AMN107 [Suspect]
     Dosage: 400 MG, QD
     Route: 048
     Dates: start: 20130820, end: 20130820
  4. STI571 [Suspect]
     Indication: CHRONIC MYELOID LEUKAEMIA
     Dosage: 600 MG, QD
     Dates: start: 20120626, end: 20120820
  5. STI571 [Suspect]
     Dosage: 600 MG, QD
     Dates: start: 20120904, end: 20121105
  6. METHOTREXATE [Concomitant]
     Indication: BLOOD CREATININE INCREASED
     Dosage: 10 MG, QD
     Route: 048
     Dates: start: 20130710, end: 20130821
  7. METHOTREXATE [Concomitant]
     Indication: DERMATOMYOSITIS
  8. ALFACALCIDOL [Concomitant]
     Indication: OSTEOPOROSIS PROPHYLAXIS
     Dosage: 5 UG, QD
     Route: 048
     Dates: start: 20130630, end: 20130821
  9. FOLIC ACID [Concomitant]
     Indication: PROPHYLAXIS
     Dosage: 15 MG, QW
     Route: 048
     Dates: start: 20130710, end: 20130821
  10. PREDNISONE [Concomitant]
     Indication: DERMATOMYOSITIS
     Dosage: 40 MG, QD
     Route: 048
     Dates: start: 20130808, end: 20130821
  11. ALENDRONATE SODIUM [Concomitant]
     Indication: OSTEOPOROSIS PROPHYLAXIS
     Dosage: 70 MG, QW
     Route: 048
     Dates: start: 20130808, end: 20130821

REACTIONS (2)
  - Pneumonia [Fatal]
  - Respiratory failure [Fatal]
